FAERS Safety Report 6078515-2 (Version None)
Quarter: 2009Q1

REPORT INFORMATION
  Report Type: 
  Country: None (occurrence: None)
  Receive Date: 20090211
  Receipt Date: 20090211
  Transmission Date: 20090719
  Serious: Yes (Life-Threatening, Other)
  Sender: FDA-Public Use
  Company Number: None

PATIENT
  Age: 25 Month
  Sex: Female
  Weight: 12.7007 kg

DRUGS (1)
  1. TRIAMINIC THIN STRIP DIPHENHYDRAMINE HCI 12.5MG TRIAMINIC/NOVARTIS [Suspect]
     Indication: COUGH
     Dosage: 1 THIN STRIP EVERY 4 HOURS PO ONLY ONE DOSE GIVEN
     Route: 048

REACTIONS (5)
  - DROOLING [None]
  - DYSSTASIA [None]
  - HEART RATE INCREASED [None]
  - SOMNOLENCE [None]
  - TREMOR [None]
